FAERS Safety Report 6366653-6 (Version None)
Quarter: 2009Q3

REPORT INFORMATION
  Report Type: 
  Country: None (occurrence: None)
  Receive Date: 20090921
  Receipt Date: 20090911
  Transmission Date: 20100115
  Serious: Yes (Hospitalization)
  Sender: FDA-Public Use
  Company Number: PHHO2009US11298

PATIENT
  Weight: 88.5 kg

DRUGS (3)
  1. NEORAL [Suspect]
     Indication: HEART TRANSPLANT
     Dosage: 125 MG/DAY
     Route: 048
     Dates: start: 20090304
  2. MYCOPHENOLATE MOFETIL [Suspect]
     Indication: HEART TRANSPLANT
     Dosage: 1250 MG/DAY
     Route: 048
     Dates: start: 20090304
  3. SOLU-MEDROL [Concomitant]
     Indication: HEART TRANSPLANT REJECTION
     Dosage: 250 MG, UNK
     Route: 042
     Dates: start: 20090902, end: 20090902

REACTIONS (8)
  - ATRIAL FIBRILLATION [None]
  - BACK PAIN [None]
  - EJECTION FRACTION DECREASED [None]
  - HEART TRANSPLANT REJECTION [None]
  - LOSS OF CONSCIOUSNESS [None]
  - OSTEOMYELITIS [None]
  - SINUS TACHYCARDIA [None]
  - SYNCOPE [None]
